FAERS Safety Report 10712316 (Version 4)
Quarter: 2016Q1

REPORT INFORMATION
  Report Type: Spontaneous
  Country: CA (occurrence: CA)
  Receive Date: 20150115
  Receipt Date: 20160315
  Transmission Date: 20160525
  Serious: Yes (Hospitalization, Other)
  Sender: FDA-Public Use
  Company Number: CA-ROCHE-1520459

PATIENT
  Age: 79 Year
  Sex: Female

DRUGS (2)
  1. XOLAIR [Suspect]
     Active Substance: OMALIZUMAB
     Indication: ASTHMA
     Route: 058
     Dates: start: 20060721
  2. XOLAIR [Suspect]
     Active Substance: OMALIZUMAB
     Route: 058
     Dates: start: 20160309

REACTIONS (8)
  - Restless legs syndrome [Unknown]
  - Lymphoedema [Unknown]
  - Balance disorder [Unknown]
  - Cellulitis [Unknown]
  - Dizziness [Unknown]
  - Carotid artery occlusion [Recovering/Resolving]
  - Myocardial infarction [Recovering/Resolving]
  - General physical condition abnormal [Unknown]

NARRATIVE: CASE EVENT DATE: 20141213
